FAERS Safety Report 7290537-2 (Version None)
Quarter: 2011Q1

REPORT INFORMATION
  Report Type: 
  Country: None (occurrence: None)
  Receive Date: 20110214
  Receipt Date: 20110210
  Transmission Date: 20110831
  Serious: No
  Sender: FDA-Public Use
  Company Number: US-PFIZER INC-2011030292

PATIENT
  Sex: Female
  Weight: 68.934 kg

DRUGS (4)
  1. ADVIL [Suspect]
     Indication: ARTHRITIS
     Dosage: 200 MG, UNK
     Route: 048
     Dates: start: 20110201, end: 20110210
  2. CENTRUM [Concomitant]
     Indication: SUPPLEMENTATION THERAPY
     Dosage: UNK
     Route: 048
  3. CALCIUM [Concomitant]
     Indication: SUPPLEMENTATION THERAPY
     Dosage: 1000 MG DAILY
     Route: 048
  4. ADVIL [Concomitant]
     Dosage: 200 MG, 1X/DAY
     Route: 048

REACTIONS (4)
  - INSOMNIA [None]
  - RESTLESSNESS [None]
  - PALPITATIONS [None]
  - PRURITUS [None]
